FAERS Safety Report 9059645 (Version 1)
Quarter: 2013Q1

REPORT INFORMATION
  Report Type: Spontaneous
  Country: US (occurrence: None)
  Receive Date: 20130205
  Receipt Date: 20130205
  Transmission Date: 20140127
  Serious: Yes (Hospitalization, Disabling)
  Sender: FDA-Public Use
  Company Number: None

PATIENT
  Age: 33 Year
  Sex: Male
  Weight: 108.86 kg

DRUGS (1)
  1. MEFLOQUINE HCL [Suspect]

REACTIONS (8)
  - Psychotic disorder [None]
  - Depression [None]
  - Abnormal behaviour [None]
  - Suicidal ideation [None]
  - Abasia [None]
  - Oedema peripheral [None]
  - Chills [None]
  - Flashback [None]
